FAERS Safety Report 16503639 (Version 1)
Quarter: 2019Q3

REPORT INFORMATION
  Report Type: Spontaneous
  Country: US (occurrence: US)
  Receive Date: 20190521
  Receipt Date: 20190521
  Transmission Date: 20191004
  Serious: Yes (Hospitalization)
  Sender: FDA-Public Use
  Company Number: None

PATIENT
  Age: 60 Year
  Sex: Male

DRUGS (6)
  1. TRAMADOL. [Concomitant]
     Active Substance: TRAMADOL
  2. HUMIRA [Suspect]
     Active Substance: ADALIMUMAB
     Indication: COLITIS
     Route: 058
     Dates: start: 20181011
  3. APRISO [Concomitant]
     Active Substance: MESALAMINE
  4. PREDNISONE. [Concomitant]
     Active Substance: PREDNISONE
  5. CIPROFLOXACIN. [Concomitant]
     Active Substance: CIPROFLOXACIN
  6. CLEOCIN [Concomitant]
     Active Substance: CLINDAMYCIN PHOSPHATE

REACTIONS (4)
  - Abdominal pain [None]
  - Quality of life decreased [None]
  - Diarrhoea [None]
  - Infection [None]

NARRATIVE: CASE EVENT DATE: 20190508
